FAERS Safety Report 9669923 (Version 1)
Quarter: 2013Q4

REPORT INFORMATION
  Report Type: Spontaneous
  Country: US (occurrence: None)
  Receive Date: 20131104
  Receipt Date: 20131104
  Transmission Date: 20140711
  Serious: Yes (Hospitalization)
  Sender: FDA-Public Use
  Company Number: AUR-APL-2013-08861

PATIENT
  Age: 50 Year
  Sex: Female

DRUGS (5)
  1. DONEPEZIL [Suspect]
     Indication: COGNITIVE DISORDER
  2. DALFAMPRIDINE [Suspect]
     Indication: SECONDARY PROGRESSIVE MULTIPLE SCLEROSIS
     Dosage: 20 MG (10 MG IN 2 IN 1 D)
  3. GLATIRAMER (GLATIRAMER) [Concomitant]
  4. BACLOFEN (BACLOFEN) [Concomitant]
  5. LEVAQUIN (LEVOFLOXACIN) [Concomitant]

REACTIONS (6)
  - Grand mal convulsion [None]
  - Cerebral atrophy [None]
  - Cerebral small vessel ischaemic disease [None]
  - Cerebral ventricle dilatation [None]
  - Culture urine positive [None]
  - Convulsive threshold lowered [None]
